FAERS Safety Report 9241450 (Version 2)
Quarter: 2013Q2

REPORT INFORMATION
  Report Type: Spontaneous
  Country: US (occurrence: US)
  Receive Date: 20130419
  Receipt Date: 20130606
  Transmission Date: 20140414
  Serious: No
  Sender: FDA-Public Use
  Company Number: US-BIOGENIDEC-2013BI034458

PATIENT
  Sex: Female

DRUGS (1)
  1. AVONEX [Suspect]
     Indication: MULTIPLE SCLEROSIS
     Route: 030
     Dates: start: 20100922

REACTIONS (8)
  - Feeling of despair [Unknown]
  - Emotional poverty [Unknown]
  - Irritability [Unknown]
  - Mobility decreased [Unknown]
  - Nervousness [Unknown]
  - Panic attack [Unknown]
  - Depression [Unknown]
  - Emotional distress [Unknown]
